FAERS Safety Report 9496722 (Version 1)
Quarter: 2013Q3

REPORT INFORMATION
  Report Type: Spontaneous
  Country: US (occurrence: None)
  Receive Date: 20130903
  Receipt Date: 20130903
  Transmission Date: 20140515
  Serious: Yes (Death, Hospitalization)
  Sender: FDA-Public Use
  Company Number: None

PATIENT
  Age: 85 Year
  Sex: Male

DRUGS (1)
  1. PLAVIX [Suspect]

REACTIONS (5)
  - Myocardial infarction [None]
  - Bundle branch block [None]
  - Cardiogenic shock [None]
  - Atrial fibrillation [None]
  - Drug ineffective [None]
